FAERS Safety Report 7491742-2 (Version None)
Quarter: 2011Q2

REPORT INFORMATION
  Report Type: 
  Country: None (occurrence: None)
  Receive Date: 20110518
  Receipt Date: 20110518
  Transmission Date: 20111010
  Serious: Yes (Other)
  Sender: FDA-Public Use
  Company Number: None

PATIENT
  Sex: Female
  Weight: 48.8 kg

DRUGS (1)
  1. ENBREL [Suspect]
     Indication: JUVENILE ARTHRITIS
     Dosage: 50 MG QW SQ
     Route: 058
     Dates: start: 20110329, end: 20110414

REACTIONS (4)
  - LOSS OF CONSCIOUSNESS [None]
  - DRUG HYPERSENSITIVITY [None]
  - DIZZINESS [None]
  - CHEST PAIN [None]
